FAERS Safety Report 9398216 (Version 2)
Quarter: 2013Q3

REPORT INFORMATION
  Report Type: Spontaneous
  Country: GB (occurrence: None)
  Receive Date: 20130709
  Receipt Date: 20130723
  Transmission Date: 20140515
  Serious: Yes (Other)
  Sender: FDA-Public Use
  Company Number: AUR-APL-2013-05606

PATIENT
  Age: 65 Year
  Sex: Male
  Weight: 114.3 kg

DRUGS (11)
  1. PRAMIPEXOLE [Suspect]
     Indication: RESTLESS LEGS SYNDROME
     Route: 048
     Dates: start: 2007, end: 20120521
  2. ASPIRIN (ACETYLSALICYLIC ACID) [Concomitant]
  3. BISOPROLOL (BISOPROLOL) [Concomitant]
  4. CLONAZEPAM (CLONAZEPAM) [Concomitant]
  5. DOXAZOSIN (DOXAZOSIN) [Concomitant]
  6. GLYCERYL TRINITRATE (GLYCERYL TRINITRATE) [Concomitant]
  7. INSULIN (INSULIN) [Concomitant]
  8. ISOSOBIDE MONONITRATE (ISOSORBIDE MONONITRATE) [Concomitant]
  9. METFORMIN (METFORMIN) [Concomitant]
  10. OMEPRAZOLE (OMEPRAZOLE) [Concomitant]
  11. RAMIPRIL (RAMIPRIL) [Concomitant]

REACTIONS (1)
  - Drug ineffective [None]
